FAERS Safety Report 4584341-3 (Version None)
Quarter: 2005Q1

REPORT INFORMATION
  Report Type: 
  Country: None (occurrence: None)
  Receive Date: 20050125
  Receipt Date: 20041025
  Transmission Date: 20050727
  Serious: No
  Sender: FDA-Public Use
  Company Number: USA041082101

PATIENT
  Age: 51 Year
  Sex: Female
  Weight: 61 kg

DRUGS (3)
  1. FORTEO [Suspect]
     Indication: OSTEOPOROSIS
     Dosage: 20 UG/L DAY
     Dates: start: 20040801
  2. RALOXIFENE HCL [Suspect]
     Indication: OSTEOPOROSIS
  3. FLUOXETINE [Concomitant]

REACTIONS (9)
  - ABDOMINAL DISTENSION [None]
  - BODY HEIGHT DECREASED [None]
  - DEPRESSION [None]
  - NASAL CONGESTION [None]
  - NAUSEA [None]
  - PAIN IN EXTREMITY [None]
  - RHINITIS [None]
  - SLEEP DISORDER [None]
  - WEIGHT INCREASED [None]
